FAERS Safety Report 7543913-4 (Version None)
Quarter: 2011Q2

REPORT INFORMATION
  Report Type: 
  Country: None (occurrence: None)
  Receive Date: 20110613
  Receipt Date: 20110602
  Transmission Date: 20111010
  Serious: Yes (Other)
  Sender: FDA-Public Use
  Company Number: JP-AMGEN-KDC438901

PATIENT
  Age: 68 Year
  Sex: Female
  Weight: 34 kg

DRUGS (9)
  1. MUCOSTA [Concomitant]
     Route: 048
  2. MAGMITT [Concomitant]
     Route: 048
  3. FORSENID [Concomitant]
     Route: 048
  4. LENDORMIN [Concomitant]
     Route: 048
  5. PANITUMUMAB [Suspect]
     Indication: COLORECTAL CANCER
     Dosage: UNK UNK, Q2WK
     Route: 041
     Dates: start: 20100817
  6. NAUZELIN [Concomitant]
     Route: 048
  7. DEPROMEL [Concomitant]
     Route: 048
  8. DAIKENTYUTO [Concomitant]
     Route: 048
  9. OPALMON [Concomitant]
     Route: 048

REACTIONS (6)
  - BLOOD AMYLASE INCREASED [None]
  - HEPATIC FUNCTION ABNORMAL [None]
  - DRY SKIN [None]
  - PARONYCHIA [None]
  - DERMATITIS ACNEIFORM [None]
  - HAEMOGLOBIN DECREASED [None]
